FAERS Safety Report 7562109-3 (Version None)
Quarter: 2011Q2

REPORT INFORMATION
  Report Type: 
  Country: None (occurrence: None)
  Receive Date: 20110622
  Receipt Date: 20110614
  Transmission Date: 20111010
  Serious: Yes (Hospitalization)
  Sender: FDA-Public Use
  Company Number: CA-BIOGENIDEC-2011BI016612

PATIENT
  Age: 32 Year
  Sex: Female

DRUGS (2)
  1. AVONEX [Suspect]
     Route: 030
  2. AVONEX [Suspect]
     Indication: MULTIPLE SCLEROSIS
     Route: 030
     Dates: start: 20110301

REACTIONS (7)
  - DEHYDRATION [None]
  - NASOPHARYNGITIS [None]
  - MUSCULAR WEAKNESS [None]
  - SPEECH DISORDER [None]
  - FALL [None]
  - ASTHENIA [None]
  - INFLUENZA LIKE ILLNESS [None]
